FAERS Safety Report 7062978-X (Version None)
Quarter: 2010Q4

REPORT INFORMATION
  Report Type: 
  Country: None (occurrence: None)
  Receive Date: 20101026
  Receipt Date: 20100406
  Transmission Date: 20110411
  Serious: No
  Sender: FDA-Public Use
  Company Number: US-PFIZER INC-2010045085

PATIENT
  Sex: Female
  Weight: 79.819 kg

DRUGS (11)
  1. LIPITOR [Suspect]
     Indication: BLOOD CHOLESTEROL INCREASED
     Dosage: UNK
  2. LIPITOR [Suspect]
     Dosage: 10 MG, DAILY
     Dates: end: 20100101
  3. ACETYLSALICYLIC ACID [Concomitant]
     Dosage: UNK
  4. POTASSIUM [Concomitant]
     Dosage: UNK
  5. LEVOXYL [Concomitant]
     Dosage: UNK
  6. NIACIN [Concomitant]
     Dosage: UNK
  7. SPIRONOLACTONE W/ HYDROCHLOROTHIAZIDE [Concomitant]
     Dosage: UNK
  8. VITAMIN D [Concomitant]
     Dosage: UNK
  9. MOTRIN [Concomitant]
     Dosage: UNK
  10. COSOPT [Concomitant]
     Dosage: UNK
  11. DDAVP [Concomitant]
     Dosage: UNK

REACTIONS (1)
  - MYALGIA [None]
